FAERS Safety Report 8685083 (Version 2)
Quarter: 2012Q4

REPORT INFORMATION
  Report Type: 
  Country: US (occurrence: US)
  Receive Date: 20120726
  Receipt Date: 20120917
  Transmission Date: 20130627
  Serious: No
  Sender: FDA-Public Use
  Company Number: US-ASTRAZENECA-2011SE73225

PATIENT
  Age: 62 Year
  Sex: Female
  Weight: 64.9 kg

DRUGS (8)
  1. SYMBICORT [Suspect]
     Indication: ASTHMA
     Dosage: 80/4.5 MCG, 2 PUFF BID
     Route: 055
     Dates: start: 2009, end: 2011
  2. SYMBICORT [Suspect]
     Indication: ASTHMA
     Dosage: 80/4.5 MCG, 4 PUFFS UNKNOWN
     Route: 055
  3. SYMBICORT [Suspect]
     Indication: ASTHMA
     Dosage: 80/4.5 MCG, 1 PUFFS DAILY
     Route: 055
  4. SYMBICORT [Suspect]
     Indication: ASTHMA
     Dosage: 160/4.5 MCG, 4 PUFFS DAILY
     Route: 055
     Dates: start: 201101
  5. SYMBICORT [Suspect]
     Indication: ASTHMA
     Dosage: 80/4.5 MCG, 1 PUFF BID
     Route: 055
     Dates: start: 2011, end: 201205
  6. SYMBICORT [Suspect]
     Indication: ASTHMA
     Dosage: 80/4.5 MCG, 2 PUFFS BID
     Route: 055
     Dates: start: 2012
  7. NATURAL SUPPLEMENT [Concomitant]
  8. VITAMIN [Concomitant]

REACTIONS (4)
  - Asthma [Unknown]
  - Chest discomfort [Unknown]
  - Off label use [Unknown]
  - Circumstance or information capable of leading to medication error [Unknown]
